FAERS Safety Report 25976823 (Version 10)
Quarter: 2025Q4

REPORT INFORMATION
  Report Type: Report from Study
  Country: EU (occurrence: EU)
  Receive Date: 20251029
  Receipt Date: 20251211
  Transmission Date: 20260117
  Serious: Yes (Hospitalization, Other)
  Sender: ABBVIE
  Company Number: EU-ABBVIE-6523753

PATIENT
  Age: 69 Year
  Sex: Female

DRUGS (4)
  1. FOSCARBIDOPA\FOSLEVODOPA [Suspect]
     Active Substance: FOSCARBIDOPA\FOSLEVODOPA
     Indication: Parkinson^s disease
     Dosage: BASAL DOSE OF 0.30 ML/H, LOW DOSE OF 0.15 ML/H, HIGH DOSE OF 0.40 ML/H.?EVERY DAY FOR 24 HOURS??L...
     Route: 058
     Dates: start: 20251023
  2. FOSCARBIDOPA\FOSLEVODOPA [Suspect]
     Active Substance: FOSCARBIDOPA\FOSLEVODOPA
     Dosage: DOSE INCREASED, HIGH FLOW OF 0.45 ALL DAY AND AT NIGHT LOW FLOW OF 0.20.
     Route: 058
     Dates: start: 2025
  3. INBRIJA [Concomitant]
     Active Substance: LEVODOPA
     Indication: Product used for unknown indication
  4. NEUPRO [Concomitant]
     Active Substance: ROTIGOTINE
     Indication: Parkinson^s disease
     Route: 062
     Dates: start: 20251114

REACTIONS (13)
  - Post procedural complication [Unknown]
  - Drug ineffective [Unknown]
  - Abdominal operation [Recovered/Resolved]
  - Intestinal perforation [Recovered/Resolved]
  - Device dislocation [Unknown]
  - Movement disorder [Recovered/Resolved]
  - Peritonitis [Recovered/Resolved]
  - Dyskinesia [Recovered/Resolved]
  - Eye disorder [Not Recovered/Not Resolved]
  - On and off phenomenon [Not Recovered/Not Resolved]
  - Dyskinesia [Not Recovered/Not Resolved]
  - C-reactive protein increased [Unknown]
  - Therapeutic product effect incomplete [Unknown]

NARRATIVE: CASE EVENT DATE: 20250101
